FAERS Safety Report 20346057 (Version 1)
Quarter: 2022Q1

REPORT INFORMATION
  Report Type: Spontaneous
  Country: US (occurrence: None)
  Receive Date: 20220117
  Receipt Date: 20220117
  Transmission Date: 20220423
  Serious: Yes (Other)
  Sender: FDA-Public Use
  Company Number: None

PATIENT
  Age: 62 Year
  Sex: Female
  Weight: 63.05 kg

DRUGS (2)
  1. ESTRADIOL [Suspect]
     Active Substance: ESTRADIOL
  2. ESTRACE [Concomitant]
     Active Substance: ESTRADIOL

REACTIONS (2)
  - Breast swelling [None]
  - Breast pain [None]

NARRATIVE: CASE EVENT DATE: 20160101
